FAERS Safety Report 19916459 (Version 1)
Quarter: 2021Q4

REPORT INFORMATION
  Report Type: Spontaneous
  Country: US (occurrence: US)
  Receive Date: 20211005
  Receipt Date: 20211005
  Transmission Date: 20220303
  Serious: No
  Sender: FDA-Public Use
  Company Number: US-CELGENE-USA-20210907169

PATIENT
  Sex: Male

DRUGS (1)
  1. ZEPOSIA [Suspect]
     Active Substance: OZANIMOD HYDROCHLORIDE
     Indication: Colitis ulcerative
     Route: 048

REACTIONS (6)
  - Dizziness [Unknown]
  - Headache [Unknown]
  - Nausea [Unknown]
  - Dry mouth [Unknown]
  - Libido decreased [Unknown]
  - Pain [Unknown]
